FAERS Safety Report 20309753 (Version 6)
Quarter: 2022Q1

REPORT INFORMATION
  Report Type: Report from Study
  Country: CN (occurrence: CN)
  Receive Date: 20220107
  Receipt Date: 20220221
  Transmission Date: 20220423
  Serious: Yes (Life-Threatening, Hospitalization)
  Sender: FDA-Public Use
  Company Number: CN-GLAXOSMITHKLINE-CN2022GSK002894

PATIENT
  Age: 37 Year
  Sex: Female
  Weight: 48 kg

DRUGS (14)
  1. NIRAPARIB [Suspect]
     Active Substance: NIRAPARIB
     Indication: Gastric cancer
     Dosage: 200 MG, QD
     Route: 065
     Dates: start: 20211124, end: 20211201
  2. NIRAPARIB [Suspect]
     Active Substance: NIRAPARIB
     Indication: Neoplasm
     Dosage: 200 MG, QD
     Route: 065
     Dates: start: 20211215, end: 20211229
  3. TEBOTELIMAB [Suspect]
     Active Substance: TEBOTELIMAB
     Indication: Gastric cancer
     Dosage: 600 MG, Q2W
     Route: 042
     Dates: start: 20211124, end: 20211124
  4. TEBOTELIMAB [Suspect]
     Active Substance: TEBOTELIMAB
     Indication: Neoplasm
     Dosage: 600 MG, Q2W
     Route: 042
     Dates: start: 20211222, end: 20211222
  5. LEVOTHYROXINE SODIUM [Concomitant]
     Active Substance: LEVOTHYROXINE SODIUM
     Indication: Hypothyroidism
     Dosage: 2.5 DF, 50 UG (TABLET), QD
     Route: 048
     Dates: start: 202010
  6. LEVOTHYROXINE SODIUM [Concomitant]
     Active Substance: LEVOTHYROXINE SODIUM
     Dosage: 50 UG
     Route: 048
     Dates: start: 202010
  7. FENTANYL TRANSDERMAL SYSTEM [Concomitant]
     Active Substance: FENTANYL
     Indication: Pain
     Dosage: UNK, Z ONCE EVERY THREE DAYS
     Route: 061
     Dates: start: 20211203
  8. PERINDOPRIL + INDAPAMIDE [Concomitant]
     Indication: Hypertension
     Dosage: 1 DF, QD
     Dates: start: 20211203
  9. IVABRADINE HYDROCHLORIDE [Concomitant]
     Active Substance: IVABRADINE HYDROCHLORIDE
     Indication: Sinus tachycardia
     Dosage: 5 MG, BID
     Route: 048
     Dates: start: 20211203
  10. ONDANSETRON HYDROCHLORIDE [Concomitant]
     Active Substance: ONDANSETRON HYDROCHLORIDE
     Indication: Vomiting
     Dosage: 8 MG, QD
     Route: 048
     Dates: start: 20211208
  11. LACTULOSE [Concomitant]
     Active Substance: LACTULOSE
     Indication: Constipation
     Dosage: 100 ML, QD
     Route: 048
     Dates: start: 20211222, end: 20211222
  12. DICLOFENAC SODIUM SUPPOSITORY [Concomitant]
     Indication: Pain
     Dosage: 50 MG, QD
     Dates: start: 20211222, end: 20211222
  13. RECOMBINANT HUMAN THROMBOPOIETIN INJECTION [Concomitant]
     Indication: Platelet count decreased
     Dosage: 15000IU/ML, QD
     Route: 058
     Dates: start: 20211229, end: 20211229
  14. GRANULOCYTE COLONY-STIMULATING FACTOR NOS [Concomitant]
     Active Substance: GRANULOCYTE COLONY-STIMULATING FACTOR NOS
     Indication: White blood cell count decreased
     Dosage: 300 UG, QD
     Dates: start: 20211229, end: 20211231

REACTIONS (2)
  - Myelosuppression [Recovering/Resolving]
  - Acute kidney injury [Recovering/Resolving]

NARRATIVE: CASE EVENT DATE: 20220104
